FAERS Safety Report 4300109-7 (Version None)
Quarter: 2004Q1

REPORT INFORMATION
  Report Type: 
  Country: None (occurrence: None)
  Receive Date: 20040218
  Receipt Date: 20040206
  Transmission Date: 20041129
  Serious: Yes (Life-Threatening, Hospitalization)
  Sender: FDA-Public Use
  Company Number: 2004SE00368

PATIENT
  Age: 84 Year
  Sex: Female
  Weight: 41 kg

DRUGS (7)
  1. BLOPRESS [Suspect]
     Indication: HYPERTENSION
     Dosage: 8 MG QD PO
     Route: 048
     Dates: start: 20010515, end: 20040105
  2. CLARITH [Suspect]
     Indication: BRONCHITIS CHRONIC
     Dosage: 200 MG DAILY PO
     Route: 048
     Dates: start: 20021214, end: 20040105
  3. MENATETRENONE [Concomitant]
  4. FERROUS CITRATE [Concomitant]
  5. TICLOPIDINE HYDROCHLORIDE [Concomitant]
  6. AMLODIPINE BESYLATE [Concomitant]
  7. ALFACALCIDOL [Concomitant]

REACTIONS (4)
  - DRUG INTERACTION [None]
  - MULTI-ORGAN FAILURE [None]
  - RHABDOMYOLYSIS [None]
  - SHOCK [None]
